FAERS Safety Report 5751319-3 (Version None)
Quarter: 2008Q2

REPORT INFORMATION
  Report Type: 
  Country: None (occurrence: None)
  Receive Date: 20080528
  Receipt Date: 20080523
  Transmission Date: 20081010
  Serious: Yes (Hospitalization)
  Sender: FDA-Public Use
  Company Number: IT-ABBOTT-08P-083-0450438-00

PATIENT
  Sex: Male

DRUGS (1)
  1. KLACID [Suspect]
     Indication: TONSILLITIS
     Route: 048
     Dates: start: 20080315, end: 20080315

REACTIONS (2)
  - RASH [None]
  - TONGUE OEDEMA [None]
